FAERS Safety Report 10439909 (Version 1)
Quarter: 2014Q3

REPORT INFORMATION
  Report Type: Spontaneous
  Country: US (occurrence: US)
  Receive Date: 20140908
  Receipt Date: 20140908
  Transmission Date: 20150326
  Serious: No
  Sender: FDA-Public Use
  Company Number: US-BRISTOL-MYERS SQUIBB COMPANY-19375583

PATIENT
  Age: 57 Year
  Sex: Female

DRUGS (7)
  1. TEGRETOL [Concomitant]
     Active Substance: CARBAMAZEPINE
  2. EFFEXOR [Concomitant]
     Active Substance: VENLAFAXINE HYDROCHLORIDE
     Dosage: PREVIOUSLY 150 MG
  3. DOXEPIN [Concomitant]
     Active Substance: DOXEPIN
     Indication: INSOMNIA
     Dosage: 1-2 TABS QHS PRN
  4. GEODON [Concomitant]
     Active Substance: ZIPRASIDONE HYDROCHLORIDE\ZIPRASIDONE MESYLATE
  5. ABILIFY [Suspect]
     Active Substance: ARIPIPRAZOLE
     Indication: BIPOLAR DISORDER
     Dates: start: 20130829
  6. BENZTROPINE [Concomitant]
     Active Substance: BENZTROPINE
  7. VALIUM [Concomitant]
     Active Substance: DIAZEPAM

REACTIONS (6)
  - Polydipsia [Unknown]
  - Nausea [Unknown]
  - Muscle spasms [Unknown]
  - Photosensitivity reaction [Unknown]
  - Dyskinesia [Unknown]
  - Retching [Unknown]

NARRATIVE: CASE EVENT DATE: 20130905
